FAERS Safety Report 8036987-8 (Version None)
Quarter: 2012Q1

REPORT INFORMATION
  Report Type: 
  Country: None (occurrence: None)
  Receive Date: 20120111
  Receipt Date: 20120110
  Transmission Date: 20120608
  Serious: No
  Sender: FDA-Public Use
  Company Number: US-PFIZER INC-2012000042

PATIENT
  Sex: Female
  Weight: 63.492 kg

DRUGS (11)
  1. CHANTIX [Suspect]
     Indication: SMOKING CESSATION THERAPY
     Dosage: 0.5 MG, 1X/DAY
     Route: 048
     Dates: start: 20111226, end: 20111201
  2. KLONOPIN [Concomitant]
     Dosage: 1 MG, 1X/DAY
  3. DOCUSATE [Concomitant]
     Dosage: 250 MG, 1X/DAY
  4. CHANTIX [Suspect]
     Dosage: 0.5 MG, 2X/DAY
     Dates: start: 20111201
  5. TRAMADOL [Concomitant]
     Dosage: UNK
  6. PREDNISONE [Concomitant]
     Dosage: 10 MG, 3X/DAY
  7. REMERON [Concomitant]
     Dosage: UNK
  8. OXYCODONE [Concomitant]
     Indication: BACK DISORDER
  9. QUETIAPINE [Concomitant]
     Dosage: 300 MG, 1X/DAY
  10. SPIRIVA [Concomitant]
     Indication: LUNG DISORDER
     Dosage: UNK
  11. OXYCODONE [Concomitant]
     Indication: MUSCULOSKELETAL DISCOMFORT
     Dosage: 30 MG, AS NEEDED

REACTIONS (3)
  - NAUSEA [None]
  - ANXIETY [None]
  - DYSGEUSIA [None]
